FAERS Safety Report 4378681-0 (Version None)
Quarter: 2004Q2

REPORT INFORMATION
  Report Type: 
  Country: None (occurrence: None)
  Receive Date: 20040616
  Receipt Date: 20040608
  Transmission Date: 20050107
  Serious: Yes (Other)
  Sender: FDA-Public Use
  Company Number: ES-ROCHE-370360

PATIENT
  Age: 53 Year
  Sex: Male

DRUGS (4)
  1. MYCOPHENOLATE MOFETIL [Suspect]
     Route: 048
     Dates: start: 20040601, end: 20040602
  2. DACLIZUMAB [Suspect]
     Route: 042
     Dates: start: 20040601, end: 20040601
  3. SIROLIMUS [Suspect]
     Route: 048
     Dates: start: 20040601, end: 20040602
  4. PREDNISONE [Suspect]
     Route: 042
     Dates: start: 20040602, end: 20040602

REACTIONS (4)
  - ANURIA [None]
  - GRAFT THROMBOSIS [None]
  - HYPOTENSION [None]
  - POST PROCEDURAL HAEMORRHAGE [None]
